FAERS Safety Report 7177943-1 (Version None)
Quarter: 2010Q4

REPORT INFORMATION
  Report Type: 
  Country: None (occurrence: None)
  Receive Date: 20101220
  Receipt Date: 20101216
  Transmission Date: 20110411
  Serious: Yes (Death, Hospitalization, Other)
  Sender: FDA-Public Use
  Company Number: BR-ABBOTT-09P-020-0601087-00

PATIENT
  Sex: Female
  Weight: 74 kg

DRUGS (10)
  1. HUMIRA [Suspect]
     Indication: RHEUMATOID ARTHRITIS
     Route: 058
     Dates: start: 20090107
  2. ARTROSIL [Concomitant]
     Indication: RHEUMATOID ARTHRITIS
     Route: 048
  3. CELEBRA [Concomitant]
     Indication: RHEUMATOID ARTHRITIS
     Route: 048
  4. METICORTEN [Concomitant]
     Indication: RHEUMATOID ARTHRITIS
     Route: 048
  5. DIOVAN [Concomitant]
     Indication: HYPERTENSION
     Route: 048
  6. DIOVAN [Concomitant]
     Route: 048
     Dates: start: 20090101
  7. AMARYL [Concomitant]
     Indication: DIABETES MELLITUS
     Route: 048
     Dates: start: 20090201
  8. CHLORZOXAZONE W/ APAP [Concomitant]
     Indication: PAIN
     Route: 062
  9. UNKNOWN THERAPY [Concomitant]
     Indication: BLOOD PRESSURE
  10. UNKNOWN CORTICOIDS [Concomitant]
     Indication: PRODUCT USED FOR UNKNOWN INDICATION

REACTIONS (18)
  - ANAEMIA [None]
  - ARTHRALGIA [None]
  - BLOOD GLUCOSE INCREASED [None]
  - BONE EROSION [None]
  - BONE PAIN [None]
  - BURSITIS [None]
  - DIABETES MELLITUS [None]
  - GASTRIC ULCER [None]
  - IMMUNODEFICIENCY [None]
  - INFECTION [None]
  - JOINT SWELLING [None]
  - MULTI-ORGAN FAILURE [None]
  - RENAL FAILURE [None]
  - SEPSIS [None]
  - SEPTIC SHOCK [None]
  - SURGERY [None]
  - WEIGHT INCREASED [None]
  - WRIST DEFORMITY [None]
